FAERS Safety Report 21131777 (Version 1)
Quarter: 2022Q3

REPORT INFORMATION
  Report Type: Spontaneous
  Country: US (occurrence: None)
  Receive Date: 20220725
  Receipt Date: 20220725
  Transmission Date: 20221026
  Serious: No
  Sender: FDA-Public Use
  Company Number: None

PATIENT
  Age: 51 Year
  Sex: Male

DRUGS (1)
  1. BEBTELOVIMAB [Suspect]
     Active Substance: BEBTELOVIMAB
     Indication: COVID-19 treatment

REACTIONS (6)
  - Chest discomfort [None]
  - Dyspnoea [None]
  - Cardiac flutter [None]
  - Pallor [None]
  - Hyperhidrosis [None]
  - Blood pressure decreased [None]

NARRATIVE: CASE EVENT DATE: 20220725
